FAERS Safety Report 9911482 (Version 2)
Quarter: 2014Q1

REPORT INFORMATION
  Report Type: Spontaneous
  Country: US (occurrence: US)
  Receive Date: 20140219
  Receipt Date: 20140318
  Transmission Date: 20141002
  Serious: Yes (Other)
  Sender: FDA-Public Use
  Company Number: CHPA2014US002493

PATIENT
  Age: 65 Year
  Sex: Male

DRUGS (2)
  1. VOLTAREN GEL [Suspect]
     Indication: SCAB
     Dosage: A LITTLE BIT, UNK
     Route: 061
     Dates: start: 20140201, end: 20140205
  2. VOLTAREN GEL [Suspect]
     Indication: OFF LABEL USE
     Dosage: A LITTLE BIT, UNK
     Route: 061
     Dates: start: 20140201, end: 20140205

REACTIONS (6)
  - Ear haemorrhage [Recovered/Resolved]
  - Application site pain [Recovered/Resolved]
  - Epistaxis [Recovered/Resolved]
  - Expired drug administered [Unknown]
  - Drug administered at inappropriate site [Unknown]
  - Wrong technique in drug usage process [Unknown]
